FAERS Safety Report 9338422 (Version 2)
Quarter: 2013Q4

REPORT INFORMATION
  Report Type: Spontaneous
  Country: GB (occurrence: GB)
  Receive Date: 20130610
  Receipt Date: 20131030
  Transmission Date: 20140711
  Serious: Yes (Death, Other)
  Sender: FDA-Public Use
  Company Number: GB-RANBAXY-2013R1-69813

PATIENT
  Age: 63 Year
  Sex: Female
  Weight: 100 kg

DRUGS (4)
  1. ATORVASTATIN [Suspect]
     Indication: HYPERCHOLESTEROLAEMIA
     Dosage: 40 MG, QD
     Route: 048
     Dates: end: 20130420
  2. FUCIDIN [Interacting]
     Indication: OSTEOMYELITIS CHRONIC
     Dosage: 500 MG, TID
     Route: 048
     Dates: start: 20130228, end: 20130420
  3. CEFTRIAXONE [Concomitant]
     Indication: OSTEOMYELITIS CHRONIC
     Dosage: UNK
     Route: 042
  4. FLUCLOXACILLIN [Concomitant]
     Indication: OSTEOMYELITIS CHRONIC
     Dosage: UNK
     Route: 048

REACTIONS (7)
  - Blood creatine phosphokinase increased [Not Recovered/Not Resolved]
  - Intestinal ischaemia [Not Recovered/Not Resolved]
  - Multi-organ failure [Fatal]
  - Myositis [Not Recovered/Not Resolved]
  - Rhabdomyolysis [Not Recovered/Not Resolved]
  - Drug interaction [Not Recovered/Not Resolved]
  - Muscular weakness [Not Recovered/Not Resolved]
